FAERS Safety Report 10610349 (Version 2)
Quarter: 2014Q4

REPORT INFORMATION
  Report Type: Spontaneous
  Country: US (occurrence: None)
  Receive Date: 20141124
  Receipt Date: 20141205
  Transmission Date: 20150529
  Serious: Yes (Other)
  Sender: FDA-Public Use
  Company Number: 2629885

PATIENT
  Age: 27 Year
  Sex: Female

DRUGS (5)
  1. LIDOCAINE HCL 1% + EPIN. 1:100,000 INJ, USP, MULTI-DOSE FLIPTOP VIALS (LIDOCAINE HYDROCHLORIDE) [Suspect]
     Active Substance: EPINEPHRINE\LIDOCAINE HYDROCHLORIDE
     Indication: ANAESTHESIA
     Dates: start: 20141003
  2. SODIUM BICARBONATE. [Suspect]
     Active Substance: SODIUM BICARBONATE
     Indication: DRUG THERAPY
     Dosage: MORE THAN 3 ML
     Dates: start: 20141003
  3. DEPO-TESTOSTERONE [Concomitant]
     Active Substance: TESTOSTERONE CYPIONATE
  4. AMOXICILLIN. [Concomitant]
     Active Substance: AMOXICILLIN
  5. BACTRIM [Concomitant]
     Active Substance: SULFAMETHOXAZOLE\TRIMETHOPRIM

REACTIONS (6)
  - Burning sensation [None]
  - Injection site induration [None]
  - Incorrect dose administered [None]
  - Wrong technique in drug usage process [None]
  - Drug ineffective [None]
  - Erythema [None]

NARRATIVE: CASE EVENT DATE: 20141003
